FAERS Safety Report 5520562-0 (Version None)
Quarter: 2007Q4

REPORT INFORMATION
  Report Type: 
  Country: None (occurrence: None)
  Receive Date: 20071119
  Receipt Date: 20071106
  Transmission Date: 20080405
  Serious: Yes (Hospitalization)
  Sender: FDA-Public Use
  Company Number: DE-PFIZER INC-2007075901

PATIENT
  Sex: Male

DRUGS (2)
  1. SUTENT [Suspect]
     Indication: RENAL CELL CARCINOMA STAGE UNSPECIFIED
     Route: 048
  2. CARBOPLATIN [Suspect]
     Dosage: DAILY DOSE:300MG
     Route: 042

REACTIONS (5)
  - ANOREXIA [None]
  - BLOOD TEST ABNORMAL [None]
  - DEHYDRATION [None]
  - LEUKOPENIA [None]
  - THROMBOCYTOPENIA [None]
